FAERS Safety Report 9315693 (Version 2)
Quarter: 2013Q3

REPORT INFORMATION
  Report Type: Report from Study
  Country: CA (occurrence: CA)
  Receive Date: 20130529
  Receipt Date: 20130710
  Transmission Date: 20140515
  Serious: Yes (Hospitalization)
  Sender: FDA-Public Use
  Company Number: CA-ELI_LILLY_AND_COMPANY-CA201305006222

PATIENT
  Age: 67 Year
  Sex: Female
  Weight: 126 kg

DRUGS (18)
  1. TERIPARATIDE [Suspect]
     Indication: OSTEOPOROSIS
     Dosage: 20MCG, QD
     Route: 058
     Dates: start: 20120410, end: 20130416
  2. TERIPARATIDE [Suspect]
     Dosage: UNK, UNK
  3. SYNTHROID [Concomitant]
  4. FENTANYL [Concomitant]
     Dosage: 25MCG., UNK
  5. ATIVAN [Concomitant]
  6. APO-HYDROXYQUINE [Concomitant]
  7. ARAVA [Concomitant]
  8. D-TABS [Concomitant]
  9. ATENOLOL [Concomitant]
  10. ESTRACE [Concomitant]
  11. MICARDIS [Concomitant]
  12. NEXIUM [Concomitant]
  13. IMDUR [Concomitant]
  14. SIMVASTATIN [Concomitant]
  15. DOCUSATE SODIUM [Concomitant]
  16. SENNOSIDE [Concomitant]
  17. PREDNISONE [Concomitant]
  18. DILAUDID [Concomitant]

REACTIONS (3)
  - Diverticulitis [Recovered/Resolved with Sequelae]
  - Headache [Not Recovered/Not Resolved]
  - Hyperhidrosis [Not Recovered/Not Resolved]
